FAERS Safety Report 14242130 (Version 1)
Quarter: 2017Q4

REPORT INFORMATION
  Report Type: Spontaneous
  Country: US (occurrence: US)
  Receive Date: 20171201
  Receipt Date: 20171201
  Transmission Date: 20180321
  Serious: Yes (Other)
  Sender: FDA-Public Use
  Company Number: US-APOTEX-2017AP022228

PATIENT

DRUGS (2)
  1. DASATINIB TABLETS [Suspect]
     Active Substance: DASATINIB
     Indication: ACUTE LEUKAEMIA
     Route: 065
  2. IMATINIB MESYLATE TABLETS [Suspect]
     Active Substance: IMATINIB MESYLATE
     Indication: ACUTE LEUKAEMIA
     Dosage: UNK
     Route: 065

REACTIONS (3)
  - Leukaemia recurrent [Unknown]
  - Drug ineffective [Unknown]
  - Drug intolerance [Unknown]
